FAERS Safety Report 6265037-9 (Version None)
Quarter: 2009Q3

REPORT INFORMATION
  Report Type: 
  Country: None (occurrence: None)
  Receive Date: 20090708
  Receipt Date: 20090708
  Transmission Date: 20100115
  Serious: Yes (Life-Threatening, Hospitalization)
  Sender: FDA-Public Use
  Company Number: None

PATIENT
  Sex: Female
  Weight: 77.1115 kg

DRUGS (1)
  1. GEMFIBROZIL [Suspect]
     Indication: BLOOD TRIGLYCERIDES INCREASED
     Dosage: 600 MG BID PO
     Route: 048
     Dates: start: 20090227, end: 20090307

REACTIONS (6)
  - ASTHENIA [None]
  - CHROMATURIA [None]
  - DYSSTASIA [None]
  - LOSS OF CONTROL OF LEGS [None]
  - MOBILITY DECREASED [None]
  - PAIN [None]
